FAERS Safety Report 4611965-7 (Version None)
Quarter: 2005Q2

REPORT INFORMATION
  Report Type: 
  Country: None (occurrence: None)
  Receive Date: 20050308
  Receipt Date: 20050114
  Transmission Date: 20051028
  Serious: Yes (Other)
  Sender: FDA-Public Use
  Company Number: 2005UW00786

PATIENT
  Age: 68 Year
  Sex: Female
  Weight: 63.049 kg

DRUGS (7)
  1. CRESTOR [Suspect]
     Indication: HYPERCHOLESTEROLAEMIA
     Dosage: 10 MG PO
     Route: 048
     Dates: start: 20041101, end: 20041101
  2. CRESTOR [Suspect]
     Indication: HYPERCHOLESTEROLAEMIA
     Dosage: 20 MG PO
     Route: 048
     Dates: start: 20041101, end: 20041202
  3. PROTONIX [Suspect]
  4. ATENOLOL [Concomitant]
  5. HYDROCHLOROTHIAZIDE [Concomitant]
  6. ESTRADIOL [Concomitant]
  7. POTASSIUM CHLORIDE [Concomitant]

REACTIONS (3)
  - DIARRHOEA [None]
  - FLUSHING [None]
  - PHYSICAL DISABILITY [None]
